FAERS Safety Report 14526157 (Version 2)
Quarter: 2018Q1

REPORT INFORMATION
  Report Type: Spontaneous
  Country: DE (occurrence: DE)
  Receive Date: 20180213
  Receipt Date: 20180309
  Transmission Date: 20180509
  Serious: Yes (Other)
  Sender: FDA-Public Use
  Company Number: DE-AUROBINDO-AUR-APL-2018-005153

PATIENT
  Sex: Male
  Weight: 81 kg

DRUGS (2)
  1. INSULIN [Concomitant]
     Active Substance: INSULIN NOS
     Indication: TYPE 2 DIABETES MELLITUS
     Dosage: UNK ()
     Route: 065
     Dates: start: 2016
  2. METFORMIN [Suspect]
     Active Substance: METFORMIN HYDROCHLORIDE
     Indication: DIABETES MELLITUS
     Dosage: UNK
     Route: 048
     Dates: start: 19880101, end: 20161231

REACTIONS (6)
  - Pulmonary oedema [Unknown]
  - Renal function test abnormal [Recovered/Resolved]
  - Renal impairment [Recovered/Resolved]
  - Blood pressure systolic increased [Unknown]
  - Cartilage injury [Unknown]
  - Chronic obstructive pulmonary disease [Unknown]

NARRATIVE: CASE EVENT DATE: 2003
